FAERS Safety Report 9158246 (Version 1)
Quarter: 2013Q1

REPORT INFORMATION
  Report Type: Spontaneous
  Country: IN (occurrence: None)
  Receive Date: 20130211
  Receipt Date: 20130211
  Transmission Date: 20140127
  Serious: Yes (Hospitalization, Other)
  Sender: FDA-Public Use
  Company Number: 2013/024

PATIENT
  Age: 62 Year
  Sex: Male

DRUGS (1)
  1. OLANZAPINE [Suspect]
     Indication: SCHIZOPHRENIA

REACTIONS (4)
  - Camptocormia [None]
  - Back pain [None]
  - Myalgia [None]
  - Blood creatine phosphokinase increased [None]
